FAERS Safety Report 9517922 (Version 1)
Quarter: 2013Q3

REPORT INFORMATION
  Report Type: Spontaneous
  Country: US (occurrence: None)
  Receive Date: 20130910
  Receipt Date: 20130910
  Transmission Date: 20140515
  Serious: Yes (Hospitalization, Other)
  Sender: FDA-Public Use
  Company Number: None

PATIENT
  Age: 44 Year
  Sex: Female
  Weight: 65.77 kg

DRUGS (2)
  1. EXALGO ER 16MG [Suspect]
     Indication: MIGRAINE
     Dosage: ONCE DAILY
     Route: 048
     Dates: start: 20130701, end: 20130909
  2. EXALGO ER 16MG [Suspect]
     Indication: NECK PAIN
     Dosage: ONCE DAILY
     Route: 048
     Dates: start: 20130701, end: 20130909

REACTIONS (2)
  - Choledochotomy [None]
  - Abdominal pain [None]
